FAERS Safety Report 17172173 (Version 1)
Quarter: 2019Q4

REPORT INFORMATION
  Report Type: Spontaneous
  Country: US (occurrence: US)
  Receive Date: 20191219
  Receipt Date: 20191219
  Transmission Date: 20200122
  Serious: Yes (Other)
  Sender: FDA-Public Use
  Company Number: US-PFIZER INC-2019546605

PATIENT
  Age: 79 Year
  Sex: Female
  Weight: 68.4 kg

DRUGS (3)
  1. LYRICA [Suspect]
     Active Substance: PREGABALIN
     Indication: FIBROMYALGIA
     Dosage: 100 MG, 3X/DAY
     Route: 048
  2. LYRICA [Suspect]
     Active Substance: PREGABALIN
     Indication: NEUROPATHY PERIPHERAL
     Dosage: 25 MG, UNK
  3. TOVIAZ [Suspect]
     Active Substance: FESOTERODINE FUMARATE
     Indication: INCONTINENCE
     Dosage: 8 MG, 1X/DAY [ONCE AT NIGHT]
     Route: 048

REACTIONS (11)
  - Neuropathy peripheral [Not Recovered/Not Resolved]
  - Cerebral haemorrhage [Unknown]
  - Gait disturbance [Unknown]
  - Nerve injury [Unknown]
  - Head injury [Unknown]
  - Peripheral coldness [Unknown]
  - Concussion [Unknown]
  - Limb discomfort [Unknown]
  - Loss of consciousness [Unknown]
  - Body height decreased [Unknown]
  - Nausea [Unknown]
